FAERS Safety Report 9790565 (Version 3)
Quarter: 2014Q2

REPORT INFORMATION
  Report Type: Spontaneous
  Country: IE (occurrence: IE)
  Receive Date: 20131231
  Receipt Date: 20140404
  Transmission Date: 20141212
  Serious: Yes (Hospitalization)
  Sender: FDA-Public Use
  Company Number: US-ASTRAZENECA-2013SE94289

PATIENT
  Sex: Female

DRUGS (7)
  1. SYNAGIS [Suspect]
     Indication: LISSENCEPHALY
     Route: 030
  2. HYOSCINE [Concomitant]
     Indication: PRODUCT USED FOR UNKNOWN INDICATION
  3. ZANTAC [Concomitant]
     Indication: PRODUCT USED FOR UNKNOWN INDICATION
  4. SABRIL [Concomitant]
     Indication: PRODUCT USED FOR UNKNOWN INDICATION
  5. CLOBAZAM [Concomitant]
     Indication: PRODUCT USED FOR UNKNOWN INDICATION
  6. OMEPRAZOLE [Concomitant]
     Indication: PRODUCT USED FOR UNKNOWN INDICATION
  7. MOVICOL [Concomitant]
     Indication: PRODUCT USED FOR UNKNOWN INDICATION
     Dosage: EVERY DAY

REACTIONS (8)
  - Lower respiratory tract infection viral [Unknown]
  - Viral infection [Unknown]
  - Respiratory rate increased [Unknown]
  - Respiratory tract congestion [Unknown]
  - Pneumonia aspiration [Unknown]
  - Lower respiratory tract infection [Unknown]
  - Upper respiratory tract infection [Unknown]
  - Convulsion [Unknown]
